FAERS Safety Report 7794748-9 (Version None)
Quarter: 2011Q4

REPORT INFORMATION
  Report Type: 
  Country: None (occurrence: None)
  Receive Date: 20111004
  Receipt Date: 20110930
  Transmission Date: 20120403
  Serious: No
  Sender: FDA-Public Use
  Company Number: US-PFIZER INC-2011234415

PATIENT
  Age: 63 Year
  Sex: Female
  Weight: 94.331 kg

DRUGS (5)
  1. CAPTOPRIL [Concomitant]
     Indication: BLOOD PRESSURE ABNORMAL
     Dosage: UNK, 2X/DAY
     Route: 048
  2. POTASSIUM [Concomitant]
     Indication: BLOOD PRESSURE ABNORMAL
     Dosage: 10 MEQ, DAILY
  3. HYDROCHLOROTHIAZIDE [Concomitant]
     Indication: BLOOD PRESSURE ABNORMAL
     Dosage: 50 MG, DAILY
  4. LIPITOR [Suspect]
     Dosage: 40 MG, 1X/DAY
     Route: 048
  5. LIPITOR [Suspect]
     Indication: BLOOD CHOLESTEROL INCREASED
     Dosage: 20 MG, 1X/DAY
     Route: 048

REACTIONS (2)
  - SINUS CONGESTION [None]
  - MALAISE [None]
